FAERS Safety Report 10040508 (Version 1)
Quarter: 2014Q1

REPORT INFORMATION
  Report Type: Spontaneous
  Country: US (occurrence: US)
  Receive Date: 20140327
  Receipt Date: 20140327
  Transmission Date: 20141002
  Serious: Yes (Hospitalization)
  Sender: FDA-Public Use
  Company Number: US-ROCHE-1371030

PATIENT
  Sex: Female

DRUGS (2)
  1. XELODA [Suspect]
     Indication: COLON CANCER
     Route: 048
     Dates: start: 20131118, end: 20140315
  2. COUMADIN [Concomitant]

REACTIONS (7)
  - Pain [Not Recovered/Not Resolved]
  - Blister [Not Recovered/Not Resolved]
  - Gastrointestinal inflammation [Unknown]
  - Gastrointestinal pain [Unknown]
  - Anticoagulation drug level above therapeutic [Not Recovered/Not Resolved]
  - Palmar-plantar erythrodysaesthesia syndrome [Not Recovered/Not Resolved]
  - Inflammation [Not Recovered/Not Resolved]
